FAERS Safety Report 9884307 (Version 1)
Quarter: 2014Q1

REPORT INFORMATION
  Report Type: Spontaneous
  Country: US (occurrence: None)
  Receive Date: 20140205
  Receipt Date: 20140205
  Transmission Date: 20141002
  Serious: Yes (Death)
  Sender: FDA-Public Use
  Company Number: SYM-2014-15741

PATIENT
  Age: 61 Year
  Sex: Male

DRUGS (1)
  1. RIBAVIRIN(RIBAVIRIN) [Suspect]
     Indication: RESPIRATORY SYNCYTIAL VIRUS TEST
     Route: 042
     Dates: start: 20140121

REACTIONS (1)
  - Death [None]
